APPROVED DRUG PRODUCT: METYROSINE
Active Ingredient: METYROSINE
Strength: 250MG
Dosage Form/Route: CAPSULE;ORAL
Application: A218620 | Product #001 | TE Code: AB
Applicant: DR REDDYS LABORATORIES SA
Approved: Apr 9, 2025 | RLD: No | RS: No | Type: RX